FAERS Safety Report 13738178 (Version 1)
Quarter: 2017Q3

REPORT INFORMATION
  Report Type: Spontaneous
  Country: GB (occurrence: GB)
  Receive Date: 20170710
  Receipt Date: 20170710
  Transmission Date: 20171127
  Serious: Yes (Death)
  Sender: FDA-Public Use
  Company Number: GB-TEVA-783754ACC

PATIENT
  Age: 74 Year
  Sex: Male

DRUGS (4)
  1. NEORAL [Concomitant]
     Active Substance: CYCLOSPORINE
     Dosage: 100 MILLIGRAM DAILY; TAKEN EACH MORNING
     Route: 065
  2. MYFENAX [Suspect]
     Active Substance: MYCOPHENOLATE MOFETIL
     Dosage: 2 GRAM DAILY;
     Route: 065
  3. PREDNISOLONE. [Suspect]
     Active Substance: PREDNISOLONE
     Dosage: 7.5 MILLIGRAM DAILY;
     Route: 065
  4. NEORAL [Concomitant]
     Active Substance: CYCLOSPORINE
     Dosage: 7.5 MILLIGRAM DAILY; TAKEN EACH AFTERNOON
     Route: 065

REACTIONS (1)
  - Death [Fatal]

NARRATIVE: CASE EVENT DATE: 20170619
